FAERS Safety Report 8239717 (Version 2)
Quarter: 2013Q4

REPORT INFORMATION
  Report Type: Spontaneous
  Country: US (occurrence: US)
  Receive Date: 20111110
  Receipt Date: 20131211
  Transmission Date: 20140711
  Serious: Yes (Hospitalization)
  Sender: FDA-Public Use
  Company Number: US-ASTRAZENECA-2011SE12376

PATIENT
  Age: 60 Year
  Sex: Male
  Weight: 108.4 kg

DRUGS (20)
  1. LISINOPRIL [Suspect]
     Indication: CARDIAC DISORDER
     Route: 048
  2. LISINOPRIL [Suspect]
     Indication: CARDIAC DISORDER
     Dosage: PRINIVIL
     Route: 048
  3. CRESTOR [Suspect]
     Indication: BLOOD CHOLESTEROL INCREASED
     Route: 048
  4. CRESTOR [Suspect]
     Indication: BLOOD CHOLESTEROL INCREASED
     Route: 048
     Dates: start: 2013
  5. ASPIRIN [Concomitant]
     Indication: CARDIAC DISORDER
     Route: 048
  6. NIASPAN [Concomitant]
     Route: 048
  7. PROTONIX [Concomitant]
     Route: 048
  8. ACETAMINOPHEN [Concomitant]
     Route: 048
  9. KLONOPIN [Concomitant]
     Indication: BIPOLAR DISORDER
     Route: 048
  10. LEXAPRO [Concomitant]
     Indication: BIPOLAR DISORDER
  11. MULTI-DAY VITAMINS [Concomitant]
     Route: 048
  12. NITROGLYCERIN [Concomitant]
     Dosage: 400 MCGPRN
     Route: 060
  13. PLAVIX [Concomitant]
     Indication: CARDIAC DISORDER
     Route: 048
  14. RANEXA [Concomitant]
     Indication: CARDIAC DISORDER
     Route: 048
  15. SOTALOL [Concomitant]
     Indication: CARDIAC DISORDER
     Route: 048
  16. TRILIPIX [Concomitant]
     Route: 048
  17. ZETIA [Concomitant]
     Indication: BLOOD CHOLESTEROL ABNORMAL
     Route: 048
  18. LAMICTAL [Concomitant]
     Indication: BIPOLAR DISORDER
     Route: 048
  19. DEXILANT [Concomitant]
     Indication: GASTROOESOPHAGEAL REFLUX DISEASE
     Route: 048
  20. TRILEPTAL [Concomitant]
     Indication: BLOOD CHOLESTEROL ABNORMAL
     Route: 048

REACTIONS (9)
  - Extrasystoles [Recovered/Resolved]
  - Arrhythmia [Recovered/Resolved]
  - Palpitations [Recovered/Resolved]
  - Pain in jaw [Unknown]
  - Arteriosclerosis [Unknown]
  - Seasonal allergy [Unknown]
  - Bipolar disorder [Unknown]
  - Gastrooesophageal reflux disease [Unknown]
  - Drug dose omission [Unknown]
